FAERS Safety Report 10850280 (Version 1)
Quarter: 2015Q1

REPORT INFORMATION
  Report Type: Spontaneous
  Country: US (occurrence: US)
  Receive Date: 20150221
  Receipt Date: 20150221
  Transmission Date: 20150721
  Serious: No
  Sender: FDA-Public Use
  Company Number: US-NOVEN-14US013226

PATIENT
  Age: 62 Year
  Sex: Female

DRUGS (2)
  1. MINIVELLE [Suspect]
     Active Substance: ESTRADIOL
     Dosage: 0.0375MG, UNK
     Route: 062
     Dates: start: 201410
  2. MINIVELLE [Suspect]
     Active Substance: ESTRADIOL
     Indication: HOT FLUSH
     Dosage: 0.0375MG, UNK
     Route: 062
     Dates: start: 201410

REACTIONS (5)
  - No adverse event [None]
  - Wrong technique in drug usage process [Unknown]
  - Treatment noncompliance [Recovered/Resolved]
  - Incorrect drug administration duration [Recovered/Resolved]
  - Product quality issue [Not Recovered/Not Resolved]

NARRATIVE: CASE EVENT DATE: 201411
